FAERS Safety Report 5828015-7 (Version None)
Quarter: 2008Q3

REPORT INFORMATION
  Report Type: 
  Country: None (occurrence: None)
  Receive Date: 20080728
  Receipt Date: 20080714
  Transmission Date: 20090109
  Serious: Yes (Hospitalization)
  Sender: FDA-Public Use
  Company Number: 235042J08USA

PATIENT
  Age: 32 Year
  Sex: Female
  Weight: 88.905 kg

DRUGS (7)
  1. REBIF [Suspect]
     Indication: MULTIPLE SCLEROSIS
     Dosage: 44 MCG, 3 IN 1 WEEKS, SUBCUTANEOUS, 44 MCG, 3 IN 1 WEEKS, NOT REPORTED
     Route: 058
     Dates: start: 20080114, end: 20080517
  2. REBIF [Suspect]
     Indication: MULTIPLE SCLEROSIS
     Dosage: 44 MCG, 3 IN 1 WEEKS, SUBCUTANEOUS, 44 MCG, 3 IN 1 WEEKS, NOT REPORTED
     Route: 058
     Dates: start: 20080501
  3. ATIVAN [Suspect]
     Indication: AGITATION
     Dosage: NOT REPORTED, NOT REPORTED, NOT REPORTED
     Dates: start: 20080503, end: 20080515
  4. AMBIEN [Suspect]
     Indication: AGITATION
     Dosage: NOT REPORTED, NOT REPORTED, NOT REPORTED
     Dates: start: 20080503, end: 20080515
  5. GABAPENTIN [Concomitant]
  6. ZOLOFT [Concomitant]
  7. ULTRAM [Concomitant]

REACTIONS (8)
  - DIARRHOEA [None]
  - FEELING ABNORMAL [None]
  - HALLUCINATION [None]
  - LOSS OF CONSCIOUSNESS [None]
  - MEMORY IMPAIRMENT [None]
  - MULTIPLE SCLEROSIS RELAPSE [None]
  - TREMOR [None]
  - VOMITING [None]
